FAERS Safety Report 8059440-4 (Version None)
Quarter: 2012Q1

REPORT INFORMATION
  Report Type: 
  Country: None (occurrence: None)
  Receive Date: 20120120
  Receipt Date: 20120110
  Transmission Date: 20120608
  Serious: Yes (Hospitalization, Other)
  Sender: FDA-Public Use
  Company Number: US-NOVOPROD-337310

PATIENT
  Age: 36 Year
  Sex: Female
  Weight: 92.971 kg

DRUGS (6)
  1. LIRAGLUTIDE FLEXPEN [Suspect]
     Dosage: 0.6 MG, QD
     Route: 058
     Dates: start: 20111010, end: 20111014
  2. IBUPROFEN [Concomitant]
     Indication: BACK PAIN
     Dosage: 3.0 TAB, QD
     Dates: start: 20100820
  3. CYCLOBENZAPRINE [Concomitant]
     Indication: BACK PAIN
     Dosage: 1 TAB, QD
     Dates: start: 20110918, end: 20111008
  4. LIRAGLUTIDE FLEXPEN [Suspect]
     Indication: OBESITY
     Dosage: 0.6 MG, QD
     Route: 058
     Dates: start: 20111006, end: 20111008
  5. BC [Concomitant]
     Indication: BACK PAIN
     Dosage: 1 PACKAGE, QD
     Dates: start: 20100101
  6. TOPAMAX [Concomitant]
     Indication: MIGRAINE
     Dosage: 25 MG, QD
     Dates: start: 20111009

REACTIONS (2)
  - NAUSEA [None]
  - MIGRAINE [None]
